FAERS Safety Report 9015450 (Version 2)
Quarter: 2013Q1

REPORT INFORMATION
  Report Type: Spontaneous
  Country: US (occurrence: None)
  Receive Date: 20130102
  Receipt Date: 20130107
  Transmission Date: 20140127
  Serious: Yes (Other)
  Sender: FDA-Public Use
  Company Number: 2012P1067528

PATIENT
  Age: 59 Year
  Sex: Male

DRUGS (10)
  1. MYORISAN [Suspect]
     Indication: ROSACEA
     Route: 048
     Dates: start: 20120914, end: 20121213
  2. COUMADIN [Concomitant]
  3. CRESTOR [Concomitant]
  4. SILDENAFIL [Concomitant]
  5. FLOMAX [Concomitant]
  6. STAXYN [Concomitant]
  7. LORATADINE [Concomitant]
  8. FINACEA [Concomitant]
  9. OMEGA 3 FATTY ACIDS [Concomitant]
  10. VITAMIN E [Concomitant]

REACTIONS (3)
  - Depression [None]
  - Haematuria [None]
  - Off label use [None]
